FAERS Safety Report 8035862-2 (Version None)
Quarter: 2012Q1

REPORT INFORMATION
  Report Type: 
  Country: None (occurrence: None)
  Receive Date: 20120111
  Receipt Date: 20120109
  Transmission Date: 20120608
  Serious: Yes (Life-Threatening, Hospitalization, Disabling, Other)
  Sender: FDA-Public Use
  Company Number: US-ROXANE LABORATORIES, INC.-2012-RO-00454RO

PATIENT
  Age: 78 Year
  Sex: Male
  Weight: 91 kg

DRUGS (5)
  1. PREDNISONE TAB [Suspect]
     Dosage: 5 MG
     Route: 048
     Dates: start: 20111114, end: 20111122
  2. LOVENOX [Concomitant]
     Indication: DEEP VEIN THROMBOSIS
     Dosage: 40 MG
     Route: 058
     Dates: start: 20111111, end: 20111122
  3. PREDNISONE TAB [Suspect]
     Indication: COLITIS ULCERATIVE
     Dosage: 60 MG
     Route: 048
     Dates: start: 20110914, end: 20111113
  4. SORAFENIB TOSILATE [Suspect]
     Indication: METASTATIC RENAL CELL CARCINOMA
     Dosage: 800 MG
     Route: 048
     Dates: start: 20110303, end: 20111114
  5. LOVENOX [Concomitant]
     Dosage: 80 MG
     Route: 058
     Dates: start: 20111201, end: 20111202

REACTIONS (4)
  - HYPERKALAEMIA [None]
  - THROMBOSIS [None]
  - GASTRIC HAEMORRHAGE [None]
  - ATRIAL FIBRILLATION [None]
